FAERS Safety Report 5675115-0 (Version None)
Quarter: 2008Q1

REPORT INFORMATION
  Report Type: 
  Country: None (occurrence: None)
  Receive Date: 20080320
  Receipt Date: 20080312
  Transmission Date: 20080703
  Serious: Yes (Hospitalization, Other)
  Sender: FDA-Public Use
  Company Number: US-JNJFOC-20080204119

PATIENT
  Sex: Female

DRUGS (8)
  1. RISPERDAL [Suspect]
     Indication: AGGRESSION
  2. RISPERDAL [Suspect]
     Indication: SCHIZOPHRENIA
  3. TOPAMAX [Suspect]
     Indication: CONVULSION
  4. TRILEPTAL [Concomitant]
     Indication: CONVULSION
  5. CELEXA [Concomitant]
     Indication: DEPRESSION
  6. COLACE [Concomitant]
  7. IRON [Concomitant]
  8. ATIVAN [Concomitant]

REACTIONS (1)
  - SINUS ARRHYTHMIA [None]
